FAERS Safety Report 23550594 (Version 1)
Quarter: 2024Q1

REPORT INFORMATION
  Report Type: Spontaneous
  Country: IN (occurrence: IN)
  Receive Date: 20240221
  Receipt Date: 20240221
  Transmission Date: 20240410
  Serious: Yes (Other)
  Sender: FDA-Public Use
  Company Number: IN-002147023-NVSC2024IN033041

PATIENT

DRUGS (1)
  1. RUXOLITINIB [Suspect]
     Active Substance: RUXOLITINIB
     Indication: Product used for unknown indication
     Dosage: 20 MG, BID
     Route: 048
     Dates: start: 201610

REACTIONS (8)
  - Abdominal pain [Unknown]
  - Osteosclerosis [Unknown]
  - Disease progression [Unknown]
  - Asthenia [Unknown]
  - Haemangioma [Unknown]
  - Portal vein thrombosis [Unknown]
  - Splenomegaly [Unknown]
  - Weight decreased [Unknown]

NARRATIVE: CASE EVENT DATE: 20231230
